FAERS Safety Report 8903294 (Version 1)
Quarter: 2012Q4

REPORT INFORMATION
  Report Type: 
  Country: TR (occurrence: TR)
  Receive Date: 20121113
  Receipt Date: 20121113
  Transmission Date: 20130627
  Serious: Yes (Other)
  Sender: FDA-Public Use
  Company Number: TR-ROCHE-1154022

PATIENT

DRUGS (1)
  1. RANIBIZUMAB [Suspect]
     Indication: AGE-RELATED MACULAR DEGENERATION
     Route: 050

REACTIONS (1)
  - Retinal pigment epithelial tear [Unknown]
